FAERS Safety Report 9790382 (Version 2)
Quarter: 2014Q1

REPORT INFORMATION
  Report Type: Spontaneous
  Country: US (occurrence: US)
  Receive Date: 20131231
  Receipt Date: 20140204
  Transmission Date: 20141002
  Serious: No
  Sender: FDA-Public Use
  Company Number: US-009507513-1312USA008921

PATIENT
  Age: 74 Year
  Sex: Female
  Weight: 58.96 kg

DRUGS (2)
  1. OXYTROL FOR WOMEN [Suspect]
     Indication: URINARY INCONTINENCE
     Dosage: UNK, UNKNOWN
     Route: 062
     Dates: start: 20131118, end: 20131203
  2. TIMOLOL [Concomitant]
     Indication: GLAUCOMA
     Dosage: UNK, UNKNOWN

REACTIONS (3)
  - Urinary incontinence [Unknown]
  - Off label use [Unknown]
  - Drug ineffective [Unknown]
